FAERS Safety Report 5487850-8 (Version None)
Quarter: 2007Q3

REPORT INFORMATION
  Report Type: 
  Country: None (occurrence: None)
  Receive Date: 20070925
  Receipt Date: 20070830
  Transmission Date: 20080115
  Serious: No
  Sender: FDA-Public Use
  Company Number: 2007US001324

PATIENT
  Age: 49 Year
  Sex: Female

DRUGS (6)
  1. VESICARE [Suspect]
     Indication: HYPERTONIC BLADDER
     Dosage: 5 MG, IUD;QD, ORAL
     Route: 048
     Dates: start: 20070301, end: 20070701
  2. NEURONTIN [Concomitant]
  3. ABILIFY [Concomitant]
  4. KLONOPIN [Concomitant]
  5. MULTIVITAMIN [Concomitant]
  6. ASPIRIN [Concomitant]

REACTIONS (2)
  - CONSTIPATION [None]
  - MEDICATION ERROR [None]
